FAERS Safety Report 13349546 (Version 2)
Quarter: 2017Q2

REPORT INFORMATION
  Report Type: Spontaneous
  Country: JP (occurrence: JP)
  Receive Date: 20170320
  Receipt Date: 20170407
  Transmission Date: 20170830
  Serious: Yes (Hospitalization)
  Sender: FDA-Public Use
  Company Number: JP-009507513-1701JPN007879

PATIENT
  Age: 60 Year
  Sex: Male
  Weight: 57 kg

DRUGS (9)
  1. FAROM [Suspect]
     Active Substance: FAROPENEM SODIUM
     Dosage: 200 MG, TID
     Route: 048
     Dates: start: 20161222, end: 20161224
  2. BETANIS [Suspect]
     Active Substance: MIRABEGRON
     Indication: CYSTITIS
     Dosage: 25 MG, QD
     Route: 048
     Dates: start: 20161216, end: 20170105
  3. SOLANTAL [Suspect]
     Active Substance: TIARAMIDE
     Indication: CYSTITIS
     Dosage: 100 MG, TID
     Route: 048
     Dates: start: 20161216, end: 20161218
  4. CEFTRIAXONE SODIUM. [Suspect]
     Active Substance: CEFTRIAXONE SODIUM
     Indication: PNEUMONIA
     Dosage: 2 G, QD
     Route: 042
     Dates: start: 20161212, end: 20161215
  5. CEFTRIAXONE SODIUM. [Suspect]
     Active Substance: CEFTRIAXONE SODIUM
     Dosage: 2 G, QD
     Route: 042
     Dates: start: 20161223, end: 20161223
  6. COUGHCODE [Concomitant]
     Active Substance: BROMISOVAL\DIHYDROCODEINE PHOSPHATE\DYPHYLLINE\METHYLEPHEDRINE HYDROCHLORIDE, (+/-)-
     Indication: COUGH
     Dosage: UNK
     Route: 048
     Dates: start: 20161208, end: 20170105
  7. FAROM [Suspect]
     Active Substance: FAROPENEM SODIUM
     Indication: CYSTITIS
     Dosage: 200 MG, TID
     Route: 048
     Dates: start: 20161216, end: 20161218
  8. MINOMYCIN [Suspect]
     Active Substance: MINOCYCLINE HYDROCHLORIDE
     Indication: PNEUMONIA
     Dosage: 100 MG, BID
     Route: 048
     Dates: start: 20161212, end: 20161227
  9. SINGULAIR [Suspect]
     Active Substance: MONTELUKAST SODIUM
     Indication: PROPHYLAXIS
     Dosage: 10 MG, QD
     Route: 048
     Dates: start: 20161208, end: 20161215

REACTIONS (3)
  - Alveolitis allergic [Recovered/Resolved]
  - Cystitis [Unknown]
  - Hypertonic bladder [Unknown]

NARRATIVE: CASE EVENT DATE: 20161212
